FAERS Safety Report 9123614 (Version 1)
Quarter: 2013Q1

REPORT INFORMATION
  Report Type: Spontaneous
  Country: JP (occurrence: None)
  Receive Date: 20130131
  Receipt Date: 20130131
  Transmission Date: 20140127
  Serious: Yes (Hospitalization)
  Sender: FDA-Public Use
  Company Number: FK201300187

PATIENT
  Age: 67 Year
  Sex: Female

DRUGS (4)
  1. HEPARIN [Suspect]
     Indication: PRODUCT USED FOR UNKNOWN INDICATION
     Dosage: 12000 USP UNITS, 1 IN 1 D, UNKNOWN
  2. OZAGREL (OZAFREL) [Concomitant]
  3. HYDROXYUREA (HYDROXYCARBAMIDE) [Concomitant]
  4. ARGATROBAN (ARGATROBAN) [Concomitant]

REACTIONS (9)
  - Essential thrombocythaemia [None]
  - Heparin-induced thrombocytopenia [None]
  - Hemiparesis [None]
  - Cerebral infarction [None]
  - Femoral artery occlusion [None]
  - Altered state of consciousness [None]
  - Aphasia [None]
  - Toe amputation [None]
  - Deep vein thrombosis [None]
